FAERS Safety Report 9140056 (Version 2)
Quarter: 2013Q3

REPORT INFORMATION
  Report Type: Report from Study
  Country: US (occurrence: US)
  Receive Date: 20130305
  Receipt Date: 20130813
  Transmission Date: 20140515
  Serious: Yes (Death)
  Sender: FDA-Public Use
  Company Number: PHHY2013US021284

PATIENT
  Age: 90 Year
  Sex: Female
  Weight: 93 kg

DRUGS (10)
  1. CUBICIN [Suspect]
     Indication: STAPHYLOCOCCAL INFECTION
  2. VANCOMYCIN [Suspect]
     Indication: STAPHYLOCOCCAL INFECTION
     Dosage: 1000 MG, Q48H
     Route: 042
     Dates: start: 20100430, end: 20100504
  3. VANCOMYCIN [Suspect]
     Dosage: 1000 MG, QD
     Route: 042
     Dates: start: 20100505, end: 20100511
  4. AMPICILLIN [Concomitant]
  5. ROCEPHIN [Concomitant]
  6. INVANZ [Concomitant]
  7. AVELOX [Concomitant]
  8. NAFCILLIN [Concomitant]
  9. RIFAMPIN [Concomitant]
  10. ZOSYN [Concomitant]

REACTIONS (1)
  - Death [Fatal]
